FAERS Safety Report 6369239-2 (Version None)
Quarter: 2009Q3

REPORT INFORMATION
  Report Type: 
  Country: None (occurrence: None)
  Receive Date: 20090916
  Receipt Date: 20090908
  Transmission Date: 20100115
  Serious: Yes (Other)
  Sender: FDA-Public Use
  Company Number: ADR19712009

PATIENT
  Sex: Male

DRUGS (4)
  1. SERTRALINE HCL [Suspect]
     Indication: DEPRESSION
     Dosage: 1000MG TRANSPLACENTAL
     Route: 064
     Dates: start: 20041109, end: 20050901
  2. VENLAFAXINE [Suspect]
     Indication: DEPRESSION
     Dosage: 100MG + 150 MG TRANSPLACENTAL
     Route: 064
     Dates: start: 20060201, end: 20060301
  3. AMOXICILLIN [Concomitant]
  4. CEFALEXIN (PARENT) [Concomitant]

REACTIONS (8)
  - ABNORMAL PALMAR/PLANTAR CREASES [None]
  - CAESAREAN SECTION [None]
  - EAR MALFORMATION [None]
  - FOETAL DAMAGE [None]
  - HEAD DEFORMITY [None]
  - MATERNAL DRUGS AFFECTING FOETUS [None]
  - POLYHYDRAMNIOS [None]
  - UNSTABLE FOETAL LIE [None]
